FAERS Safety Report 7716762-1 (Version None)
Quarter: 2011Q3

REPORT INFORMATION
  Report Type: 
  Country: None (occurrence: None)
  Receive Date: 20110829
  Receipt Date: 20110816
  Transmission Date: 20111222
  Serious: Yes (Hospitalization)
  Sender: FDA-Public Use
  Company Number: US-UCBSA-039317

PATIENT
  Sex: Female
  Weight: 150 kg

DRUGS (1)
  1. CERTOLIZUMAB PEGOL [Suspect]
     Indication: RHEUMATOID ARTHRITIS
     Dosage: 400MG WEEKS AT 0, 2 AND 4 WEEKS FOLLOWED BY  200MG Q2W (AT WEEKS 6 TO 50)
     Route: 058

REACTIONS (4)
  - UTERINE HAEMORRHAGE [None]
  - ATRIAL FIBRILLATION [None]
  - ESCHERICHIA URINARY TRACT INFECTION [None]
  - ANAEMIA [None]
